FAERS Safety Report 5269200-5 (Version None)
Quarter: 2007Q1

REPORT INFORMATION
  Report Type: 
  Country: None (occurrence: None)
  Receive Date: 20070319
  Receipt Date: 20070306
  Transmission Date: 20070707
  Serious: Yes (Hospitalization)
  Sender: FDA-Public Use
  Company Number: FR-SANOFI-SYNTHELABO-A02200700700

PATIENT
  Age: 80 Year
  Sex: Male

DRUGS (2)
  1. ZOLPIDEM TARTRATE [Suspect]
     Indication: DRUG ADMINISTRATION ERROR
     Dosage: PROBABLY 5 MG ONCE
     Route: 060
     Dates: start: 20070301
  2. INFLUENZINUM 9CH [Concomitant]
     Indication: INFLUENZA IMMUNISATION
     Dosage: UNK
     Route: 060

REACTIONS (3)
  - DRUG ADMINISTRATION ERROR [None]
  - DYSGEUSIA [None]
  - LOSS OF CONSCIOUSNESS [None]
